FAERS Safety Report 8350309-4 (Version None)
Quarter: 2012Q2

REPORT INFORMATION
  Report Type: 
  Country: None (occurrence: None)
  Receive Date: 20120510
  Receipt Date: 20120504
  Transmission Date: 20120825
  Serious: Yes (Other)
  Sender: FDA-Public Use
  Company Number: US-AMGEN-USASP2011054266

PATIENT
  Age: 92 Year
  Sex: Female
  Weight: 65.76 kg

DRUGS (13)
  1. FENTANYL CITRATE [Concomitant]
     Dosage: 25 MUG, PRN
     Dates: start: 20111101
  2. COUMADIN [Concomitant]
     Dosage: 2 MG, UNK
     Dates: start: 20111101
  3. PROLIA [Suspect]
     Dosage: UNK
     Dates: start: 20120228
  4. LASIX [Concomitant]
     Dosage: 40 MG, QD
     Dates: start: 20100401
  5. DOCUSATE [Concomitant]
     Dosage: 100 MG, QHS
     Dates: start: 20100311
  6. CALCIUM [Concomitant]
     Dosage: UNK
  7. IMDUR [Concomitant]
     Dosage: 30 MG, BID
     Dates: start: 20100311
  8. PROLIA [Suspect]
     Indication: OSTEOPOROSIS POSTMENOPAUSAL
     Dosage: 60 MG, Q6MO
     Route: 058
     Dates: start: 20110906
  9. LOPRESSOR [Concomitant]
     Dosage: 25 MG, UNK
     Dates: start: 20120228
  10. PRILOSEC [Concomitant]
     Dosage: 20 MG, QD
     Dates: start: 20100311
  11. NEPHROCAPS [Concomitant]
     Dosage: UNK
     Dates: start: 20100311
  12. ZOCOR [Concomitant]
     Dosage: 40 MG, QHS
     Dates: start: 20060801
  13. MIACALCIN [Concomitant]
     Dosage: UNK
     Route: 045
     Dates: start: 20111117

REACTIONS (2)
  - BLOOD PARATHYROID HORMONE INCREASED [None]
  - HYPOCALCAEMIA [None]
